FAERS Safety Report 11886920 (Version 2)
Quarter: 2016Q1

REPORT INFORMATION
  Report Type: Spontaneous
  Country: US (occurrence: US)
  Receive Date: 20160104
  Receipt Date: 20160129
  Transmission Date: 20160526
  Serious: No
  Sender: FDA-Public Use
  Company Number: US-AKRIMAX-TIR-2015-0546

PATIENT
  Age: 85 Year
  Sex: Female
  Weight: 63.56 kg

DRUGS (1)
  1. TIROSINT [Suspect]
     Active Substance: LEVOTHYROXINE SODIUM
     Indication: HYPOTHYROIDISM
     Dosage: ONE 100MCG CAPSULE DAILY
     Route: 048
     Dates: start: 201512

REACTIONS (4)
  - Malabsorption [Unknown]
  - Dyspepsia [Unknown]
  - Hypersensitivity [Unknown]
  - Oesophageal discomfort [Unknown]

NARRATIVE: CASE EVENT DATE: 201512
